FAERS Safety Report 9863335 (Version 1)
Quarter: 2014Q1

REPORT INFORMATION
  Report Type: Spontaneous
  Country: US (occurrence: US)
  Receive Date: 20140203
  Receipt Date: 20140203
  Transmission Date: 20141002
  Serious: No
  Sender: FDA-Public Use
  Company Number: US-PFIZER INC-2014026149

PATIENT
  Age: 68 Year
  Sex: Female

DRUGS (13)
  1. CELEBREX [Suspect]
     Dosage: UNK
  2. BEXTRA [Suspect]
     Dosage: UNK
  3. DEPO-MEDROL [Suspect]
     Dosage: UNK
  4. METHOTREXATE SODIUM [Suspect]
     Dosage: UNK
  5. SOLU-MEDROL [Suspect]
     Dosage: UNK
  6. VIOXX [Suspect]
     Dosage: UNK
  7. PREDNISONE [Suspect]
     Dosage: UNK
  8. ZYRTEC [Suspect]
     Dosage: UNK
  9. PLAQUENIL [Suspect]
     Dosage: UNK
  10. ARAVA [Suspect]
     Dosage: UNK
  11. TRAMADOL [Suspect]
     Dosage: UNK
  12. TORADOL [Suspect]
     Dosage: UNK
  13. BIAXIN [Suspect]
     Dosage: UNK

REACTIONS (1)
  - Drug hypersensitivity [Unknown]
